FAERS Safety Report 12808128 (Version 2)
Quarter: 2016Q4

REPORT INFORMATION
  Report Type: Spontaneous
  Country: US (occurrence: US)
  Receive Date: 20161004
  Receipt Date: 20161006
  Transmission Date: 20170207
  Serious: No
  Sender: FDA-Public Use
  Company Number: US-PFIZER INC-2016461145

PATIENT
  Age: 76 Year
  Sex: Male

DRUGS (2)
  1. LYRICA [Suspect]
     Active Substance: PREGABALIN
     Indication: POST HERPETIC NEURALGIA
     Dosage: 150 MG, 2X/DAY
  2. LYRICA [Suspect]
     Active Substance: PREGABALIN
     Indication: HERPES ZOSTER
     Dosage: 300 MG, 2X/DAY (150 MG IN THE MORNING AND 150 MG AT NIGHT)

REACTIONS (7)
  - Vision blurred [Unknown]
  - Pain [Not Recovered/Not Resolved]
  - Dry eye [Unknown]
  - Fatigue [Unknown]
  - Sleep disorder [Unknown]
  - Discomfort [Unknown]
  - Drug ineffective [Unknown]
